FAERS Safety Report 9301910 (Version 2)
Quarter: 2013Q2

REPORT INFORMATION
  Report Type: Spontaneous
  Country: US (occurrence: US)
  Receive Date: 20130521
  Receipt Date: 20130607
  Transmission Date: 20140414
  Serious: Yes (Hospitalization)
  Sender: FDA-Public Use
  Company Number: US-MYLANLABS-2013S1009179

PATIENT
  Age: 53 Year
  Sex: Female
  Weight: 46.99 kg

DRUGS (25)
  1. FENTANYL TRANSDERMAL SYSTEM [Suspect]
     Indication: PAIN
     Dosage: CHANGED Q72H
     Route: 062
     Dates: start: 2008, end: 20130421
  2. FENTANYL TRANSDERMAL SYSTEM [Suspect]
     Indication: CHEST PAIN
     Dosage: CHANGED Q72H
     Route: 062
     Dates: start: 2008, end: 20130421
  3. FENTANYL TRANSDERMAL SYSTEM [Suspect]
     Indication: BACK PAIN
     Dosage: CHANGED Q72H
     Route: 062
     Dates: start: 2008, end: 20130421
  4. FENTANYL TRANSDERMAL SYSTEM [Suspect]
     Indication: PAIN
     Dosage: Q 72H
     Route: 062
     Dates: start: 20130528
  5. FENTANYL TRANSDERMAL SYSTEM [Suspect]
     Indication: CHEST PAIN
     Dosage: Q 72H
     Route: 062
     Dates: start: 20130528
  6. FENTANYL TRANSDERMAL SYSTEM [Suspect]
     Indication: BACK PAIN
     Dosage: Q 72H
     Route: 062
     Dates: start: 20130528
  7. OXYCODONE / ACETAMINOPHEN [Suspect]
     Indication: PAIN
     Route: 048
     Dates: start: 2006, end: 20130418
  8. PHENERGAN [Concomitant]
     Route: 048
  9. ONDANSETRON [Concomitant]
     Route: 048
  10. ESOMEPRAZOLE [Concomitant]
     Route: 048
  11. SPIRIVA [Concomitant]
     Route: 055
  12. MONTELUKAST [Concomitant]
     Route: 048
  13. CARISOPRODOL [Concomitant]
     Route: 048
  14. LORATADINE [Concomitant]
     Route: 048
  15. FENOFIBRATE [Concomitant]
     Route: 048
  16. LIPITOR [Concomitant]
     Route: 048
  17. CELEXA [Concomitant]
     Route: 048
  18. FUROSEMIDE [Concomitant]
     Route: 048
  19. LORAZEPAM [Concomitant]
     Route: 048
  20. VERAMYST [Concomitant]
     Route: 045
  21. ZYRTEC [Concomitant]
  22. CIPRO [Concomitant]
  23. LEVAQUIN [Concomitant]
  24. PREDNISONE [Concomitant]
  25. VICKS /01120401/ [Concomitant]

REACTIONS (4)
  - Pleuritic pain [Recovered/Resolved]
  - Non-cardiac chest pain [Recovered/Resolved]
  - Drug screen negative [Not Recovered/Not Resolved]
  - Blood potassium decreased [Recovered/Resolved]
